FAERS Safety Report 5123774-3 (Version None)
Quarter: 2006Q3

REPORT INFORMATION
  Report Type: 
  Country: None (occurrence: None)
  Receive Date: 20060811
  Receipt Date: 20060424
  Transmission Date: 20061208
  Serious: Yes (Other)
  Sender: FDA-Public Use
  Company Number: S06-USA-01644-01

PATIENT

DRUGS (1)
  1. NAMENDA [Suspect]

REACTIONS (2)
  - FALL [None]
  - HYPOGLYCAEMIA [None]
